FAERS Safety Report 5413989-9 (Version None)
Quarter: 2007Q3

REPORT INFORMATION
  Report Type: 
  Country: None (occurrence: None)
  Receive Date: 20070814
  Receipt Date: 20070731
  Transmission Date: 20080115
  Serious: No
  Sender: FDA-Public Use
  Company Number: JP-ELI_LILLY_AND_COMPANY-JP200707003860

PATIENT
  Age: 41 Year
  Sex: Female

DRUGS (2)
  1. HUMATROPE [Suspect]
     Indication: GROWTH HORMONE DEFICIENCY
     Dosage: 1.3 MG, OTHER
     Route: 058
     Dates: start: 20061120, end: 20070601
  2. THYRADIN S [Concomitant]
     Indication: HYPOTHYROIDISM
     Dosage: 2 D/F, UNK
     Route: 048

REACTIONS (2)
  - DYSPNOEA [None]
  - PHARYNGEAL OEDEMA [None]
